FAERS Safety Report 12789764 (Version 1)
Quarter: 2016Q3

REPORT INFORMATION
  Report Type: Spontaneous
  Country: US (occurrence: US)
  Receive Date: 20160928
  Receipt Date: 20160928
  Transmission Date: 20161109
  Serious: Yes (Hospitalization, Other)
  Sender: FDA-Public Use
  Company Number: US-MYLANLABS-2016M1041114

PATIENT

DRUGS (3)
  1. CISPLATIN. [Suspect]
     Active Substance: CISPLATIN
     Dosage: UNK
     Dates: start: 201604, end: 2016
  2. IFOSFAMIDE. [Suspect]
     Active Substance: IFOSFAMIDE
     Dosage: UNK
     Dates: start: 201604, end: 2016
  3. MESNA. [Suspect]
     Active Substance: MESNA
     Dosage: UNK
     Dates: start: 201604, end: 2016

REACTIONS (3)
  - Hallucination [Unknown]
  - Dehydration [Unknown]
  - Monoplegia [Unknown]

NARRATIVE: CASE EVENT DATE: 2016
